FAERS Safety Report 7264805-4 (Version None)
Quarter: 2011Q1

REPORT INFORMATION
  Report Type: 
  Country: None (occurrence: None)
  Receive Date: 20110131
  Receipt Date: 20110118
  Transmission Date: 20110831
  Serious: Yes (Hospitalization)
  Sender: FDA-Public Use
  Company Number: BR-US-EMD SERONO, INC.-7012713

PATIENT
  Sex: Female

DRUGS (7)
  1. IBUPROFEN [Concomitant]
  2. REBIF [Suspect]
     Indication: MULTIPLE SCLEROSIS
     Route: 058
     Dates: start: 20091225
  3. CARDIZEN [Concomitant]
  4. DYPIRONE [Concomitant]
  5. SERTRALINE HYDROCHLORIDE [Concomitant]
  6. MANNIPULATED FORMULATION WITH PHORPHORUS [Concomitant]
  7. ANSITEC [Concomitant]

REACTIONS (7)
  - MYOCARDIAL ISCHAEMIA [None]
  - BLOOD CREATINE PHOSPHOKINASE MB ABNORMAL [None]
  - CHEST PAIN [None]
  - ARTERIOSPASM CORONARY [None]
  - BLOOD CREATINE PHOSPHOKINASE ABNORMAL [None]
  - STRESS [None]
  - TROPONIN INCREASED [None]
